FAERS Safety Report 15048522 (Version 1)
Quarter: 2018Q2

REPORT INFORMATION
  Report Type: Spontaneous
  Country: CN (occurrence: CN)
  Receive Date: 20180622
  Receipt Date: 20180622
  Transmission Date: 20180711
  Serious: Yes (Hospitalization)
  Sender: FDA-Public Use
  Company Number: CN-ASTELLAS-2018US028188

PATIENT
  Sex: Female

DRUGS (8)
  1. MEROPENEM. [Concomitant]
     Active Substance: MEROPENEM
     Indication: LUNG INFECTION
  2. VORICONAZOLE. [Concomitant]
     Active Substance: VORICONAZOLE
     Indication: ANTI-INFECTIVE THERAPY
     Dosage: UNK UNK, UNKNOWN FREQ.
     Route: 065
  3. LINEZOLID. [Concomitant]
     Active Substance: LINEZOLID
     Indication: ANTI-INFECTIVE THERAPY
     Dosage: UNK UNK, UNKNOWN FREQ.
     Route: 065
  4. MYCAMINE [Suspect]
     Active Substance: MICAFUNGIN SODIUM
     Indication: LUNG INFECTION
  5. MEROPENEM. [Concomitant]
     Active Substance: MEROPENEM
     Indication: ANTI-INFECTIVE THERAPY
     Dosage: UNK UNK, UNKNOWN FREQ.
     Route: 065
  6. MYCAMINE [Suspect]
     Active Substance: MICAFUNGIN SODIUM
     Indication: ANTI-INFECTIVE THERAPY
     Dosage: UNK, UNKNOWN FREQ.
     Route: 042
  7. LINEZOLID. [Concomitant]
     Active Substance: LINEZOLID
     Indication: LUNG INFECTION
  8. VORICONAZOLE. [Concomitant]
     Active Substance: VORICONAZOLE
     Indication: LUNG INFECTION

REACTIONS (4)
  - Subcutaneous emphysema [Unknown]
  - Pyrexia [Recovered/Resolved]
  - Bronchiectasis [Unknown]
  - Lung infection [Unknown]
